FAERS Safety Report 10738355 (Version 1)
Quarter: 2015Q1

REPORT INFORMATION
  Report Type: Spontaneous
  Country: US (occurrence: None)
  Receive Date: 20150122
  Receipt Date: 20150122
  Transmission Date: 20150721
  Serious: Yes (Disabling)
  Sender: FDA-Public Use
  Company Number: None

PATIENT
  Age: 45 Year
  Sex: Female
  Weight: 110.68 kg

DRUGS (1)
  1. ZETIA [Suspect]
     Active Substance: EZETIMIBE
     Indication: BLOOD CHOLESTEROL INCREASED
     Route: 048
     Dates: start: 20150107, end: 20150118

REACTIONS (10)
  - Myalgia [None]
  - Arthralgia [None]
  - Chest pain [None]
  - Feeling cold [None]
  - Pain [None]
  - Feeling abnormal [None]
  - Cardiac flutter [None]
  - Dyspnoea exertional [None]
  - Fatigue [None]
  - Asthenia [None]

NARRATIVE: CASE EVENT DATE: 20150107
